FAERS Safety Report 16145153 (Version 1)
Quarter: 2019Q2

REPORT INFORMATION
  Report Type: Spontaneous
  Country: DE (occurrence: DE)
  Receive Date: 20190402
  Receipt Date: 20190402
  Transmission Date: 20190711
  Serious: Yes (Hospitalization, Other)
  Sender: FDA-Public Use
  Company Number: DE-LUPIN PHARMACEUTICALS INC.-2019-01894

PATIENT
  Age: 62 Year
  Sex: Female

DRUGS (3)
  1. RAMIPRIL. [Suspect]
     Active Substance: RAMIPRIL
     Indication: HYPERTENSION
     Dosage: 10 MILLIGRAM
     Route: 048
     Dates: start: 2006, end: 2008
  2. QUILONUM                           /00033702/ [Suspect]
     Active Substance: LITHIUM CARBONATE
     Indication: SCHIZOAFFECTIVE DISORDER
     Dosage: 1.12 GRAM, QD
     Route: 065
     Dates: start: 1992
  3. RAMIPRIL. [Suspect]
     Active Substance: RAMIPRIL
     Dosage: 5 MILLIGRAM
     Route: 048
     Dates: start: 2008

REACTIONS (6)
  - Dysmetria [Unknown]
  - Hyperreflexia [Unknown]
  - Somnolence [Unknown]
  - Psychomotor retardation [Recovered/Resolved]
  - Aphasia [Unknown]
  - Toxicity to various agents [Unknown]
